FAERS Safety Report 11802537 (Version 1)
Quarter: 2015Q4

REPORT INFORMATION
  Report Type: Spontaneous
  Country: CH (occurrence: CH)
  Receive Date: 20151204
  Receipt Date: 20151204
  Transmission Date: 20160305
  Serious: Yes (Hospitalization)
  Sender: FDA-Public Use
  Company Number: CH-TEVA-613062ISR

PATIENT
  Age: 39 Year
  Sex: Female

DRUGS (15)
  1. LANTUS [Concomitant]
     Active Substance: INSULIN GLARGINE
     Route: 065
  2. ATORVASTATIN [Suspect]
     Active Substance: ATORVASTATIN
     Dosage: 20 MILLIGRAM DAILY;
     Route: 048
     Dates: end: 201511
  3. CELLCEPT [Suspect]
     Active Substance: MYCOPHENOLATE MOFETIL\MYCOPHENOLATE MOFETIL HYDROCHLORIDE
     Indication: RENAL TRANSPLANT
     Dosage: 500 MILLIGRAM DAILY;
     Route: 048
     Dates: end: 20151102
  4. PANTOZOL [Suspect]
     Active Substance: PANTOPRAZOLE SODIUM
     Dosage: 40 MILLIGRAM DAILY;
     Route: 048
     Dates: end: 201511
  5. TRADJENTA [Concomitant]
     Active Substance: LINAGLIPTIN
     Route: 065
  6. TOREM [Concomitant]
     Active Substance: TORSEMIDE
     Route: 065
  7. FERROSANOL [Concomitant]
     Active Substance: FERROUS GLUCONATE
     Route: 065
  8. PREDNISON [Concomitant]
     Active Substance: PREDNISONE
     Route: 065
  9. VITAMIN D3 [Concomitant]
     Active Substance: CHOLECALCIFEROL
     Route: 065
  10. NOPIL FORTE [Suspect]
     Active Substance: SULFAMETHOXAZOLE\TRIMETHOPRIM
     Indication: PROPHYLAXIS
     Dosage: 0-1-0, ON TUESDAYS, FRIDAYS AND SATURDAYS
     Route: 048
     Dates: start: 201505, end: 201511
  11. ATENOLOL. [Concomitant]
     Active Substance: ATENOLOL
     Route: 065
  12. IMOVANE [Concomitant]
     Active Substance: ZOPICLONE
     Route: 065
  13. NOVALGIN [Suspect]
     Active Substance: METAMIZOLE SODIUM
     Dosage: 1 DOSAGE FORMS DAILY; STRENGTH 500MG
     Route: 048
     Dates: start: 201511, end: 201511
  14. PROGRAF [Concomitant]
     Active Substance: TACROLIMUS\TACROLIMUS ANHYDROUS
     Route: 065
  15. AMLODIPIN [Concomitant]
     Active Substance: AMLODIPINE BESYLATE
     Route: 065

REACTIONS (4)
  - Agranulocytosis [Recovering/Resolving]
  - Otitis media [Recovering/Resolving]
  - Pyrexia [Recovering/Resolving]
  - Neutropenia [Recovering/Resolving]

NARRATIVE: CASE EVENT DATE: 20151102
